FAERS Safety Report 8997310 (Version 2)
Quarter: 2013Q1

REPORT INFORMATION
  Report Type: Spontaneous
  Country: US (occurrence: US)
  Receive Date: 20130104
  Receipt Date: 20130117
  Transmission Date: 20140127
  Serious: No
  Sender: FDA-Public Use
  Company Number: US-009507513-1301USA001168

PATIENT
  Sex: Male

DRUGS (2)
  1. ASMANEX TWISTHALER [Suspect]
     Indication: SINUS DISORDER
     Dosage: UNK, QD
     Route: 055
     Dates: start: 2003
  2. CORTICOSTEROIDS (UNSPECIFIED) [Concomitant]

REACTIONS (6)
  - Muscle spasms [Recovered/Resolved]
  - Upper respiratory tract congestion [Recovered/Resolved]
  - Oxygen saturation decreased [Recovered/Resolved]
  - Productive cough [Recovered/Resolved]
  - Drug dose omission [Unknown]
  - Product quality issue [Unknown]
